FAERS Safety Report 5700643-9 (Version None)
Quarter: 2008Q2

REPORT INFORMATION
  Report Type: 
  Country: None (occurrence: None)
  Receive Date: 20080409
  Receipt Date: 20080409
  Transmission Date: 20081010
  Serious: Yes (Death, Hospitalization)
  Sender: FDA-Public Use
  Company Number: None

PATIENT
  Sex: Male
  Weight: 53 kg

DRUGS (15)
  1. THALIDOMIDE [Suspect]
     Indication: BRAIN NEOPLASM
     Dosage: 150MG QHS PO
     Route: 048
     Dates: start: 20080403
  2. THALIDOMIDE [Suspect]
     Indication: DISEASE PROGRESSION
     Dosage: 150MG QHS PO
     Route: 048
     Dates: start: 20080403
  3. THALIDOMIDE [Suspect]
     Indication: BRAIN NEOPLASM
     Dosage: 150MG QHS PO
     Route: 048
     Dates: start: 20080405
  4. THALIDOMIDE [Suspect]
     Indication: DISEASE PROGRESSION
     Dosage: 150MG QHS PO
     Route: 048
     Dates: start: 20080405
  5. THALIDOMIDE [Suspect]
     Indication: BRAIN NEOPLASM
     Dosage: 150MG QHS PO
     Route: 048
     Dates: start: 20080406
  6. THALIDOMIDE [Suspect]
     Indication: DISEASE PROGRESSION
     Dosage: 150MG QHS PO
     Route: 048
     Dates: start: 20080406
  7. CELECOXIB [Suspect]
     Indication: BRAIN NEOPLASM
     Dosage: 200MG BID PO
     Route: 048
     Dates: start: 20080403, end: 20080406
  8. CELECOXIB [Suspect]
     Indication: DISEASE PROGRESSION
     Dosage: 200MG BID PO
     Route: 048
     Dates: start: 20080403, end: 20080406
  9. FENOFIBRATE [Suspect]
     Indication: BRAIN NEOPLASM
     Dosage: 134MG Q DAY PO
     Route: 048
     Dates: start: 20080403, end: 20080406
  10. FENOFIBRATE [Suspect]
     Indication: DISEASE PROGRESSION
     Dosage: 134MG Q DAY PO
     Route: 048
     Dates: start: 20080403, end: 20080406
  11. ETOPOSIDE [Suspect]
     Indication: BRAIN NEOPLASM
     Dosage: 100MG Q DAY PO
     Route: 048
     Dates: start: 20080403, end: 20080406
  12. ETOPOSIDE [Suspect]
     Indication: DISEASE PROGRESSION
     Dosage: 100MG Q DAY PO
     Route: 048
     Dates: start: 20080403, end: 20080406
  13. PEPCID [Concomitant]
  14. COLACE [Concomitant]
  15. MIRALAX [Concomitant]

REACTIONS (6)
  - DEPRESSED LEVEL OF CONSCIOUSNESS [None]
  - DISEASE PROGRESSION [None]
  - HYDROCEPHALUS [None]
  - PAIN [None]
  - RESPIRATORY RATE INCREASED [None]
  - TACHYCARDIA [None]
